FAERS Safety Report 20496421 (Version 1)
Quarter: 2022Q1

REPORT INFORMATION
  Report Type: Spontaneous
  Country: CA (occurrence: CA)
  Receive Date: 20220221
  Receipt Date: 20220221
  Transmission Date: 20220423
  Serious: Yes (Other)
  Sender: FDA-Public Use
  Company Number: CA-JNJFOC-20220243856

PATIENT
  Age: 21 Year
  Sex: Male
  Weight: 89 kg

DRUGS (1)
  1. REMICADE [Suspect]
     Active Substance: INFLIXIMAB
     Indication: Crohn^s disease
     Route: 042

REACTIONS (5)
  - Weight increased [Unknown]
  - Faecal calprotectin increased [Unknown]
  - Blood pressure fluctuation [Unknown]
  - Intentional product use issue [Unknown]
  - Off label use [Unknown]
